FAERS Safety Report 4638634-1 (Version None)
Quarter: 2005Q2

REPORT INFORMATION
  Report Type: 
  Country: None (occurrence: None)
  Receive Date: 20050415
  Receipt Date: 20050415
  Transmission Date: 20051028
  Serious: Yes (Other)
  Sender: FDA-Public Use
  Company Number: None

PATIENT
  Age: 11 Year
  Sex: Female
  Weight: 40.8237 kg

DRUGS (3)
  1. RESPITAN SUSPENSION [Suspect]
     Indication: COUGH
     Dosage: TWO TSP PO BID
     Route: 048
     Dates: start: 20050407
  2. RESPITAN SUSPENSION [Suspect]
     Indication: UPPER RESPIRATORY TRACT INFECTION
     Dosage: TWO TSP PO BID
     Route: 048
     Dates: start: 20050407
  3. OMNICEF [Concomitant]

REACTIONS (1)
  - EPISTAXIS [None]
